FAERS Safety Report 17049923 (Version 1)
Quarter: 2019Q4

REPORT INFORMATION
  Report Type: Spontaneous
  Country: CA (occurrence: CA)
  Receive Date: 20191119
  Receipt Date: 20191119
  Transmission Date: 20200122
  Serious: Yes (Other)
  Sender: FDA-Public Use
  Company Number: CA-ACTELION-A-CH2019-197939

PATIENT
  Age: 51 Year
  Sex: Female

DRUGS (9)
  1. MYCOPHENOLATE MOFETIL. [Concomitant]
     Active Substance: MYCOPHENOLATE MOFETIL
  2. CYCLOPHOSPHAMIDE. [Concomitant]
     Active Substance: CYCLOPHOSPHAMIDE
  3. METHOTREXATE. [Concomitant]
     Active Substance: METHOTREXATE
  4. AZATHIOPRINE. [Concomitant]
     Active Substance: AZATHIOPRINE
  5. PENTOXIFILIN [Concomitant]
  6. NITROGLYCERIN. [Concomitant]
     Active Substance: NITROGLYCERIN
  7. EPOPROSTENOL SODIUM. [Suspect]
     Active Substance: EPOPROSTENOL SODIUM
     Indication: PERIPHERAL ISCHAEMIA
     Route: 042
  8. RITUXIMAB. [Concomitant]
     Active Substance: RITUXIMAB
  9. ASPIRIN. [Concomitant]
     Active Substance: ASPIRIN

REACTIONS (2)
  - Joint abscess [Recovering/Resolving]
  - Mycobacterium abscessus infection [Recovering/Resolving]
